FAERS Safety Report 19080595 (Version 3)
Quarter: 2021Q3

REPORT INFORMATION
  Report Type: Spontaneous
  Country: JP (occurrence: JP)
  Receive Date: 20210331
  Receipt Date: 20210917
  Transmission Date: 20211014
  Serious: Yes (Death, Life-Threatening, Hospitalization, Other)
  Sender: FDA-Public Use
  Company Number: JP-GILEAD-2021-0523021

PATIENT
  Age: 68 Year
  Sex: Male
  Weight: 93 kg

DRUGS (33)
  1. ALBUMIN [Concomitant]
     Active Substance: ALBUMIN HUMAN
     Dosage: 12.5 G, BID
     Route: 050
     Dates: start: 20210328, end: 20210328
  2. PITRESSIN [Concomitant]
     Active Substance: VASOPRESSIN
     Dosage: UNK
     Route: 050
     Dates: start: 20210328, end: 20210328
  3. ATORVASTATIN [ATORVASTATIN CALCIUM TRIHYDRATE] [Concomitant]
     Active Substance: ATORVASTATIN CALCIUM TRIHYDRATE
     Dosage: 10 MG, QD
     Route: 048
     Dates: end: 20210329
  4. DEXMEDETOMIDINE [DEXMEDETOMIDINE HYDROCHLORIDE] [Concomitant]
     Active Substance: DEXMEDETOMIDINE HYDROCHLORIDE
     Indication: SEDATIVE THERAPY
     Dosage: UNK
     Route: 050
     Dates: start: 20210326, end: 20210329
  5. MIDAZOLAM. [Concomitant]
     Active Substance: MIDAZOLAM
     Dosage: UNK
     Route: 050
     Dates: start: 20210328, end: 20210328
  6. TELMISARTAN. [Concomitant]
     Active Substance: TELMISARTAN
     Indication: HYPERTENSION
     Dosage: 40 MG, QD
     Route: 048
     Dates: end: 20210329
  7. LASIX [Concomitant]
     Active Substance: FUROSEMIDE
     Dosage: UNK
     Route: 050
     Dates: start: 20210328, end: 20210328
  8. AVIGAN [Concomitant]
     Active Substance: FAVIPIRAVIR
     Indication: COVID-19
     Dosage: UNK
     Dates: start: 20210318, end: 20210323
  9. ASCORBIC ACID. [Concomitant]
     Active Substance: ASCORBIC ACID
     Dosage: 500 MG, QD
     Route: 050
     Dates: start: 20210326, end: 20210327
  10. AMLODIPINE [AMLODIPINE BESILATE] [Concomitant]
     Active Substance: AMLODIPINE BESYLATE
     Indication: HYPERTENSION
     Dosage: 10 MG, QD
     Route: 048
     Dates: end: 20210329
  11. BAYASPIRIN [Concomitant]
     Active Substance: ASPIRIN
     Indication: CEREBRAL INFARCTION
     Dosage: 100 MG, QD
     Route: 048
     Dates: end: 20210329
  12. TULOBUTEROL [Concomitant]
     Active Substance: TULOBUTEROL
     Dosage: 2 MG, QD
     Route: 050
     Dates: start: 20210327, end: 20210329
  13. HEPARIN [Concomitant]
     Active Substance: HEPARIN SODIUM
     Indication: COVID-19
     Dosage: UNK
     Route: 050
     Dates: end: 20210329
  14. ROCURONIUM BROMIDE. [Concomitant]
     Active Substance: ROCURONIUM BROMIDE
     Dosage: 50 MG, QD
     Route: 050
     Dates: start: 20210326, end: 20210326
  15. VEKLURY [Suspect]
     Active Substance: REMDESIVIR
     Dosage: 100 MG, QD
     Route: 041
     Dates: start: 20210324, end: 20210328
  16. LIXIANA [Concomitant]
     Active Substance: EDOXABAN TOSYLATE
     Indication: COVID-19
     Dosage: 30 MG, QD
     Route: 048
     Dates: end: 20210326
  17. PROPOFOL. [Concomitant]
     Active Substance: PROPOFOL
     Indication: SEDATIVE THERAPY
     Dosage: UNK
     Route: 050
     Dates: start: 20210326, end: 20210329
  18. DOBUPUM [Concomitant]
     Active Substance: DOBUTAMINE HYDROCHLORIDE
     Dosage: UNK
     Route: 050
     Dates: start: 20210326, end: 20210329
  19. OMEPRAZOLE. [Concomitant]
     Active Substance: OMEPRAZOLE
     Dosage: 20 MG, BID
     Route: 050
     Dates: start: 20210326, end: 20210326
  20. VEKLURY [Suspect]
     Active Substance: REMDESIVIR
     Indication: COVID-19
     Dosage: 200 MG, QD
     Route: 041
     Dates: start: 20210323, end: 20210323
  21. NEO SYNESIN [Concomitant]
     Active Substance: PHENYLEPHRINE HYDROCHLORIDE
     Dosage: 1 MG, QD
     Route: 050
     Dates: start: 20210329, end: 20210329
  22. FENTANYL [FENTANYL CITRATE] [Concomitant]
     Active Substance: FENTANYL CITRATE
     Indication: ANALGESIC THERAPY
     Dosage: UNK
     Route: 050
     Dates: start: 20210326, end: 20210329
  23. FEBURIC [Concomitant]
     Active Substance: FEBUXOSTAT
     Indication: HYPERURICAEMIA
     Dosage: 40 MG, QD
     Route: 048
     Dates: end: 20210329
  24. NOREPINEPHRINE. [Concomitant]
     Active Substance: NOREPINEPHRINE
     Indication: BLOOD PRESSURE ABNORMAL
     Dosage: UNK
     Route: 050
     Dates: start: 20210328, end: 20210329
  25. SOLU?MEDROL [Suspect]
     Active Substance: METHYLPREDNISOLONE SODIUM SUCCINATE
     Indication: COVID-19
     Dosage: 500 MG, QD
     Route: 050
     Dates: end: 20210329
  26. ACTEMRA [Concomitant]
     Active Substance: TOCILIZUMAB
     Dosage: 600 MG
     Dates: start: 20210324
  27. DEXART [Concomitant]
     Active Substance: DEXAMETHASONE SODIUM PHOSPHATE
     Dosage: UNK
     Dates: start: 20210319
  28. VITAMEDIN INTRAVENOUS [Concomitant]
     Active Substance: CYANOCOBALAMIN\PYRIDOXINE HYDROCHLORIDE\THIAMINE
     Dosage: 1V, QD
     Route: 050
     Dates: start: 20210326, end: 20210327
  29. HUMULIN R [Concomitant]
     Active Substance: INSULIN HUMAN
     Indication: HYPERGLYCAEMIA
     Dosage: UNK
     Route: 050
     Dates: start: 20210326, end: 20210328
  30. HANP [Concomitant]
     Active Substance: CARPERITIDE
     Dosage: UNK
     Route: 050
     Dates: start: 20210326, end: 20210329
  31. MEYLON [Concomitant]
     Active Substance: SODIUM BICARBONATE
     Dosage: 7%250 ML, BID
     Route: 050
     Dates: start: 20210327, end: 20210328
  32. EZETIMIBE. [Concomitant]
     Active Substance: EZETIMIBE
     Dosage: 10 MG, QD
     Route: 048
     Dates: end: 20210329
  33. LANSOPRAZOLE. [Concomitant]
     Active Substance: LANSOPRAZOLE
     Indication: GASTROOESOPHAGEAL REFLUX DISEASE
     Dosage: 15 MG, QD
     Route: 048
     Dates: end: 20210329

REACTIONS (4)
  - General physical health deterioration [Not Recovered/Not Resolved]
  - Pulmonary alveolar haemorrhage [Unknown]
  - Hyperglycaemia [Unknown]
  - Renal impairment [Fatal]

NARRATIVE: CASE EVENT DATE: 20210326
